FAERS Safety Report 6745854-9 (Version None)
Quarter: 2010Q2

REPORT INFORMATION
  Report Type: 
  Country: None (occurrence: None)
  Receive Date: 20100528
  Receipt Date: 20100521
  Transmission Date: 20101027
  Serious: Yes (Hospitalization)
  Sender: FDA-Public Use
  Company Number: BR-ASTRAZENECA-2010SE23579

PATIENT
  Age: 61 Year
  Sex: Male

DRUGS (4)
  1. CRESTOR [Suspect]
     Indication: HYPERCHOLESTEROLAEMIA
     Route: 048
     Dates: start: 20090101, end: 20100502
  2. CARVEDILOL [Concomitant]
     Route: 048
     Dates: start: 20090101
  3. DIOVAN [Concomitant]
     Route: 048
     Dates: start: 20090101, end: 20100501
  4. LASIX [Concomitant]
     Route: 048
     Dates: start: 20090101

REACTIONS (6)
  - HEPATIC STEATOSIS [None]
  - HYPOKALAEMIA [None]
  - HYPOTENSION [None]
  - PLEURAL EFFUSION [None]
  - PNEUMONIA [None]
  - RHABDOMYOLYSIS [None]
